FAERS Safety Report 5307803-X (Version None)
Quarter: 2007Q2

REPORT INFORMATION
  Report Type: 
  Country: None (occurrence: None)
  Receive Date: 20070418
  Receipt Date: 20070405
  Transmission Date: 20071010
  Serious: Yes (Hospitalization)
  Sender: FDA-Public Use
  Company Number: 2007-156893-NL

PATIENT
  Sex: Male
  Weight: 3.912 kg

DRUGS (1)
  1. NUVARING [Suspect]

REACTIONS (3)
  - DRUG EXPOSURE DURING PREGNANCY [None]
  - JAUNDICE NEONATAL [None]
  - PREGNANCY WITH CONTRACEPTIVE DEVICE [None]
